FAERS Safety Report 15285980 (Version 6)
Quarter: 2019Q1

REPORT INFORMATION
  Report Type: Spontaneous
  Country: IT (occurrence: IT)
  Receive Date: 20180816
  Receipt Date: 20190206
  Transmission Date: 20190417
  Serious: Yes (Life-Threatening, Other)
  Sender: FDA-Public Use
  Company Number: IT-PFIZER INC-2018328525

PATIENT
  Age: 74 Year
  Sex: Female

DRUGS (7)
  1. COMBISARTAN [Concomitant]
     Active Substance: HYDROCHLOROTHIAZIDE\VALSARTAN
     Dosage: UNK
  2. CLODY [Concomitant]
     Active Substance: CLODRONATE DISODIUM
     Dosage: UNK
  3. CARDIOASPIRIN [Concomitant]
     Active Substance: ASPIRIN
     Dosage: UNK
  4. TORVAST [Suspect]
     Active Substance: ATORVASTATIN
     Dosage: 10 MG, UNK
  5. ULTRAVIST [Suspect]
     Active Substance: IOPROMIDE
     Indication: POSITRON EMISSION TOMOGRAM
     Dosage: 97 ML, ONCE
     Route: 042
     Dates: start: 20180711, end: 20180711
  6. METFORAL [Concomitant]
     Active Substance: METFORMIN HYDROCHLORIDE
     Dosage: 500 MG, UNK
  7. EUTIROX [Concomitant]
     Active Substance: LEVOTHYROXINE SODIUM
     Dosage: 100 ?G, UNK

REACTIONS (8)
  - Vomiting [Recovering/Resolving]
  - Erythema [Recovered/Resolved]
  - Nausea [Recovering/Resolving]
  - Anaphylactic shock [Recovered/Resolved]
  - Malaise [Recovering/Resolving]
  - Hypotension [Recovering/Resolving]
  - Loss of consciousness [Recovering/Resolving]
  - Respiratory arrest [Recovering/Resolving]

NARRATIVE: CASE EVENT DATE: 20180711
